FAERS Safety Report 23300379 (Version 1)
Quarter: 2023Q4

REPORT INFORMATION
  Report Type: Spontaneous
  Country: US (occurrence: US)
  Receive Date: 20231215
  Receipt Date: 20231215
  Transmission Date: 20240110
  Serious: No
  Sender: FDA-Public Use
  Company Number: US-JNJFOC-20231241958

PATIENT
  Age: 40 Year
  Sex: Male

DRUGS (4)
  1. XARELTO [Suspect]
     Active Substance: RIVAROXABAN
     Indication: Cardiac failure congestive
     Route: 048
     Dates: start: 2023
  2. XARELTO [Suspect]
     Active Substance: RIVAROXABAN
     Indication: Cerebrovascular accident
  3. XARELTO [Suspect]
     Active Substance: RIVAROXABAN
     Indication: Sleep apnoea syndrome
  4. ENTRESTO [Concomitant]
     Active Substance: SACUBITRIL\VALSARTAN

REACTIONS (2)
  - Malaise [Unknown]
  - Sleep apnoea syndrome [Unknown]
